FAERS Safety Report 6245520-2 (Version None)
Quarter: 2009Q2

REPORT INFORMATION
  Report Type: 
  Country: None (occurrence: None)
  Receive Date: 20090625
  Receipt Date: 20090416
  Transmission Date: 20091009
  Serious: No
  Sender: FDA-Public Use
  Company Number: JP-AVENTIS-200911118JP

PATIENT
  Age: 60 Year
  Sex: Female
  Weight: 55 kg

DRUGS (10)
  1. TAXOTERE [Suspect]
     Route: 041
     Dates: start: 20090319, end: 20090319
  2. KYTRIL                             /01178101/ [Suspect]
     Route: 041
     Dates: start: 20090319, end: 20090319
  3. DECADRON [Suspect]
     Route: 041
     Dates: start: 20090319, end: 20090319
  4. PRIMPERAN                          /00041901/ [Concomitant]
     Route: 048
  5. GASTER [Concomitant]
     Route: 048
  6. MAGLAX [Concomitant]
     Route: 048
  7. ANDERM [Concomitant]
  8. CIPROXAN [Concomitant]
     Route: 048
  9. SELBEX [Concomitant]
     Route: 048
  10. APHTASOLON [Concomitant]

REACTIONS (1)
  - URINARY RETENTION [None]
